FAERS Safety Report 21459518 (Version 1)
Quarter: 2022Q4

REPORT INFORMATION
  Report Type: Spontaneous
  Country: DE (occurrence: DE)
  Receive Date: 20221014
  Receipt Date: 20221014
  Transmission Date: 20230112
  Serious: Yes (Death, Congenital Anomaly)
  Sender: FDA-Public Use
  Company Number: DE-NOVARTISPH-NVSC2022DE231150

PATIENT
  Sex: Male

DRUGS (1)
  1. IBUPROFEN [Suspect]
     Active Substance: IBUPROFEN
     Indication: Foetal exposure during pregnancy
     Dosage: MATERNAL DOSE: 400-600 MG/DAY (WHEN NEEDED)
     Route: 064

REACTIONS (4)
  - Foetal death [Fatal]
  - Trisomy 21 [Unknown]
  - Limb hypoplasia congenital [Unknown]
  - Foetal exposure during pregnancy [Unknown]
